FAERS Safety Report 4470080-6 (Version None)
Quarter: 2004Q3

REPORT INFORMATION
  Report Type: 
  Country: None (occurrence: None)
  Receive Date: 20040910
  Receipt Date: 20040809
  Transmission Date: 20050211
  Serious: No
  Sender: FDA-Public Use
  Company Number: 2004227901US

PATIENT

DRUGS (2)
  1. BEXTRA [Suspect]
     Indication: TENDONITIS
     Dosage: 10 MG, QD
     Dates: start: 20040601
  2. LISINOPRIL [Concomitant]

REACTIONS (1)
  - FORMICATION [None]
